FAERS Safety Report 15884681 (Version 1)
Quarter: 2019Q1

REPORT INFORMATION
  Report Type: Report from Study
  Country: JP (occurrence: JP)
  Receive Date: 20190129
  Receipt Date: 20190129
  Transmission Date: 20190417
  Serious: Yes (Death, Hospitalization, Other)
  Sender: FDA-Public Use
  Company Number: JP-CELGENEUS-JPN-2015064800

PATIENT
  Age: 68 Year
  Sex: Female

DRUGS (41)
  1. NEXIUM [Concomitant]
     Active Substance: ESOMEPRAZOLE MAGNESIUM
     Indication: PROPHYLAXIS
     Dosage: UNKNOWN
     Route: 048
  2. DEXAMETHASONE. [Concomitant]
     Active Substance: DEXAMETHASONE
     Dosage: 13.2 MILLIGRAM
     Route: 041
     Dates: start: 20150902, end: 20150905
  3. POMALYST [Suspect]
     Active Substance: POMALIDOMIDE
     Indication: PLASMA CELL MYELOMA RECURRENT
     Dosage: 1 MILLIGRAM
     Route: 048
     Dates: start: 20150605, end: 20150610
  4. LENADEX [Suspect]
     Active Substance: DEXAMETHASONE ACETATE
     Dosage: 8 MILLIGRAM
     Route: 048
     Dates: start: 20150722, end: 20150729
  5. BAYASPIRIN [Concomitant]
     Active Substance: ASPIRIN
     Indication: PROPHYLAXIS
     Dosage: 100 MILLIGRAM
     Route: 048
     Dates: start: 20150722
  6. BONALON [Concomitant]
     Active Substance: ALENDRONATE SODIUM
     Indication: PROPHYLAXIS
     Dosage: UNKNOWN
     Route: 048
  7. JANUVIA [Concomitant]
     Active Substance: SITAGLIPTIN PHOSPHATE
     Indication: PRODUCT USED FOR UNKNOWN INDICATION
     Dosage: UNKNOWN
     Route: 048
  8. GLUCOBAY [Concomitant]
     Active Substance: ACARBOSE
     Indication: PRODUCT USED FOR UNKNOWN INDICATION
     Dosage: UNKNOWN
     Route: 048
  9. FENTOS [Concomitant]
     Active Substance: FENTANYL
     Indication: PLASMA CELL MYELOMA RECURRENT
     Dosage: UNKNOWN
     Route: 062
  10. LAXOBERON [Concomitant]
     Active Substance: SODIUM PICOSULFATE
     Indication: PRODUCT USED FOR UNKNOWN INDICATION
     Dosage: UNKNOWN
     Route: 048
  11. LECICARBON [Concomitant]
     Active Substance: SODIUM BICARBONATE\SODIUM PHOSPHATE, MONOBASIC
     Indication: PRODUCT USED FOR UNKNOWN INDICATION
     Dosage: UNKNOWN
     Route: 054
  12. MYSLEE [Concomitant]
     Active Substance: ZOLPIDEM TARTRATE
     Indication: PRODUCT USED FOR UNKNOWN INDICATION
     Dosage: UNKNOWN
     Route: 048
  13. CALONAL [Concomitant]
     Active Substance: ACETAMINOPHEN
     Indication: PLASMA CELL MYELOMA
     Dosage: UNKNOWN
     Route: 048
  14. MAGMITT [Concomitant]
     Active Substance: MAGNESIUM OXIDE
     Indication: PRODUCT USED FOR UNKNOWN INDICATION
     Dosage: UNKNOWN
     Route: 048
  15. HYALEIN [Concomitant]
     Active Substance: HYALURONATE SODIUM
     Indication: PRODUCT USED FOR UNKNOWN INDICATION
     Dosage: UNKNOWN
     Route: 047
  16. POMALYST [Suspect]
     Active Substance: POMALIDOMIDE
     Dosage: 2 MILLIGRAM
     Route: 048
     Dates: start: 20150819, end: 20150902
  17. PL [Concomitant]
     Active Substance: ACETAMINOPHEN\CAFFEINE\PROMETHAZINE\SALICYLAMIDE
     Indication: PRODUCT USED FOR UNKNOWN INDICATION
     Dosage: UNKNOWN
     Route: 048
  18. LIVALO [Concomitant]
     Active Substance: PITAVASTATIN CALCIUM
     Indication: PRODUCT USED FOR UNKNOWN INDICATION
     Dosage: UNKNOWN
     Route: 048
  19. ZOVIRAX [Concomitant]
     Active Substance: ACYCLOVIR
     Indication: PROPHYLAXIS
     Dosage: UNKNOWN
     Route: 048
  20. DEXAMETHASONE. [Concomitant]
     Active Substance: DEXAMETHASONE
     Indication: PRODUCT USED FOR UNKNOWN INDICATION
     Dosage: UNKNOWN
     Route: 065
  21. LENADEX [Suspect]
     Active Substance: DEXAMETHASONE ACETATE
     Indication: PLASMA CELL MYELOMA RECURRENT
     Dosage: 8 MILLIGRAM
     Route: 048
     Dates: start: 20150605, end: 20150605
  22. LENADEX [Suspect]
     Active Substance: DEXAMETHASONE ACETATE
     Dosage: 8 MILLIGRAM
     Route: 048
     Dates: start: 20150810, end: 20150810
  23. CRAVIT [Concomitant]
     Active Substance: LEVOFLOXACIN
     Indication: PRODUCT USED FOR UNKNOWN INDICATION
     Dosage: UNKNOWN
     Route: 048
  24. SP [Concomitant]
     Indication: PRODUCT USED FOR UNKNOWN INDICATION
     Dosage: UNKNOWN
     Route: 049
  25. CELECOX [Concomitant]
     Active Substance: CELECOXIB
     Indication: PLASMA CELL MYELOMA RECURRENT
     Dosage: UNKNOWN
     Route: 048
  26. KETOPROFEN. [Concomitant]
     Active Substance: KETOPROFEN
     Indication: PLASMA CELL MYELOMA RECURRENT
     Dosage: UNKNOWN
     Route: 062
  27. SELBEX [Concomitant]
     Active Substance: TEPRENONE
     Indication: PROPHYLAXIS
     Dosage: UNKNOWN
     Route: 048
  28. TEPRENONE [Concomitant]
     Active Substance: TEPRENONE
     Indication: PROPHYLAXIS
     Dosage: UNKNOWN
     Route: 048
  29. LENADEX [Suspect]
     Active Substance: DEXAMETHASONE ACETATE
     Dosage: 8 MILLIGRAM
     Route: 048
     Dates: start: 20150911, end: 20150911
  30. AZUNOL GARGLE LIQUID [Concomitant]
     Indication: PRODUCT USED FOR UNKNOWN INDICATION
     Dosage: UNKNOWN
     Route: 049
  31. PREDNISOLONE. [Concomitant]
     Active Substance: PREDNISOLONE
     Indication: PLASMA CELL MYELOMA RECURRENT
     Dosage: UNKNOWN
     Route: 048
  32. POMALYST [Suspect]
     Active Substance: POMALIDOMIDE
     Dosage: 3 MILLIGRAM
     Route: 048
     Dates: start: 20150722, end: 20150729
  33. BAYASPIRIN [Concomitant]
     Active Substance: ASPIRIN
     Dosage: 100 MILLIGRAM
     Route: 048
     Dates: start: 20150810, end: 20150917
  34. PURSENNID [Concomitant]
     Active Substance: SENNOSIDES A AND B
     Indication: PRODUCT USED FOR UNKNOWN INDICATION
     Dosage: UNKNOWN
     Route: 048
  35. ALKERAN [Concomitant]
     Active Substance: MELPHALAN
     Indication: PLASMA CELL MYELOMA RECURRENT
     Dosage: UNKNOWN
     Route: 048
  36. LOXONIN [Concomitant]
     Active Substance: LOXOPROFEN SODIUM
     Indication: PLASMA CELL MYELOMA RECURRENT
     Dosage: UNKNOWN
     Route: 061
  37. POMALYST [Suspect]
     Active Substance: POMALIDOMIDE
     Dosage: 2 MILLIGRAM
     Route: 048
     Dates: start: 20150810, end: 20150812
  38. POMALYST [Suspect]
     Active Substance: POMALIDOMIDE
     Dosage: 2 MILLIGRAM
     Route: 048
     Dates: start: 20150910, end: 20150910
  39. LENADEX [Suspect]
     Active Substance: DEXAMETHASONE ACETATE
     Dosage: 8 MILLIGRAM
     Route: 048
     Dates: start: 20150819, end: 20150827
  40. OXINORM [Concomitant]
     Indication: PLASMA CELL MYELOMA RECURRENT
     Dosage: UNKNOWN
     Route: 048
  41. MS ONSHIPPU [Concomitant]
     Active Substance: CAMPHOR\CAPSICUM\METHYL SALICYLATE
     Indication: PLASMA CELL MYELOMA RECURRENT
     Dosage: UNKNOWN
     Route: 062

REACTIONS (26)
  - Bone pain [Unknown]
  - Anaemia [Recovering/Resolving]
  - Proctalgia [Recovered/Resolved]
  - Abdominal discomfort [Recovered/Resolved]
  - Rash [Recovered/Resolved]
  - Epistaxis [Not Recovered/Not Resolved]
  - Palpitations [Recovered/Resolved]
  - Upper respiratory tract inflammation [Recovered/Resolved]
  - Blood urea increased [Recovered/Resolved]
  - Micturition disorder [Recovered/Resolved]
  - Blood creatinine increased [Recovered/Resolved]
  - Hypercalcaemia [Not Recovered/Not Resolved]
  - Blepharitis [Recovered/Resolved]
  - Pyrexia [Recovered/Resolved]
  - Pyrexia [Recovered/Resolved]
  - Pulmonary haemorrhage [Unknown]
  - Blood sodium decreased [Unknown]
  - Plasma cell myeloma [Fatal]
  - Nausea [Recovered/Resolved]
  - Back pain [Not Recovered/Not Resolved]
  - Lip dry [Not Recovered/Not Resolved]
  - C-reactive protein increased [Recovered/Resolved]
  - Lymphocyte count decreased [Recovered/Resolved]
  - Rash [Recovering/Resolving]
  - Leukopenia [Recovered/Resolved]
  - Enterocolitis [Recovered/Resolved]

NARRATIVE: CASE EVENT DATE: 201506
